FAERS Safety Report 4267122-X (Version None)
Quarter: 2004Q1

REPORT INFORMATION
  Report Type: 
  Country: None (occurrence: None)
  Receive Date: 20040107
  Receipt Date: 20031222
  Transmission Date: 20041129
  Serious: No
  Sender: FDA-Public Use
  Company Number: A01200200888

PATIENT
  Age: 68 Year
  Sex: Female

DRUGS (3)
  1. PLAVIX [Suspect]
     Indication: PERIPHERAL VASCULAR DISORDER
     Dosage: 75 MG, OD, ORAL
     Route: 048
     Dates: start: 20020129, end: 20020214
  2. SULPHASALAZINE [Concomitant]
  3. INSULIN [Concomitant]

REACTIONS (2)
  - CHOLELITHIASIS [None]
  - HEPATITIS [None]
